FAERS Safety Report 10263057 (Version 2)
Quarter: 2014Q2

REPORT INFORMATION
  Report Type: Report from Study
  Country: US (occurrence: US)
  Receive Date: 20140626
  Receipt Date: 20140626
  Transmission Date: 20141212
  Serious: Yes (Death, Other)
  Sender: FDA-Public Use
  Company Number: US-MYLANLABS-2013S1028799

PATIENT
  Age: 60 Year
  Sex: Male
  Weight: 83.01 kg

DRUGS (10)
  1. CLOZAPINE TABLETS [Suspect]
     Indication: SCHIZOPHRENIA
     Route: 048
  2. CLOZAPINE TABLETS [Suspect]
     Indication: SCHIZOPHRENIA
     Route: 048
     Dates: start: 20061107
  3. SEROQUEL [Concomitant]
     Route: 048
     Dates: start: 20120112
  4. COGENTIN [Concomitant]
     Route: 048
     Dates: start: 20110404
  5. ATIVAN [Concomitant]
     Route: 048
     Dates: start: 20130701
  6. MULTIVITAMIN [Concomitant]
     Dates: start: 20110908
  7. ROCEPHIN [Concomitant]
     Route: 042
     Dates: start: 20131218, end: 20131218
  8. RISPERDAL [Concomitant]
     Route: 048
  9. SENNA S [Concomitant]
     Route: 048
     Dates: start: 20131209
  10. ZITHROMAX Z-PACK [Concomitant]
     Dates: start: 20131218

REACTIONS (3)
  - Pneumonia [Unknown]
  - Pyrexia [Unknown]
  - Death [Fatal]
